FAERS Safety Report 18219055 (Version 2)
Quarter: 2020Q3

REPORT INFORMATION
  Report Type: Spontaneous
  Country: JP (occurrence: JP)
  Receive Date: 20200901
  Receipt Date: 20200930
  Transmission Date: 20201103
  Serious: No
  Sender: FDA-Public Use
  Company Number: JP-GILEAD-2020-0492493

PATIENT
  Age: 53 Year
  Sex: Male
  Weight: 78 kg

DRUGS (2)
  1. EPCLUSA [Suspect]
     Active Substance: SOFOSBUVIR\VELPATASVIR
     Indication: HEPATITIS C
     Dosage: 1 DOSAGE FORM
     Route: 048
     Dates: start: 20190711, end: 20191002
  2. LIVACT [ISOLEUCINE;LEUCINE;VALINE] [Concomitant]
     Indication: HYPOALBUMINAEMIA
     Dosage: 3P
     Route: 048
     Dates: start: 20181004

REACTIONS (2)
  - Hyperammonaemia [Recovered/Resolved]
  - Diarrhoea [Unknown]

NARRATIVE: CASE EVENT DATE: 2019
